FAERS Safety Report 5030473-5 (Version None)
Quarter: 2006Q2

REPORT INFORMATION
  Report Type: 
  Country: None (occurrence: None)
  Receive Date: 20060620
  Receipt Date: 20060613
  Transmission Date: 20061013
  Serious: Yes (Hospitalization)
  Sender: FDA-Public Use
  Company Number: IL-BOEHRINGER INGELHEIM PHARMACEUTICALS, INC.-2006-DE-03052GD

PATIENT
  Age: 72 Year
  Sex: Male

DRUGS (5)
  1. HYDROCHLOROTHIAZIDE [Suspect]
     Indication: HYPERTENSION
  2. CLONIDINE [Suspect]
     Indication: HYPERTENSION
  3. AMLODIPINE [Suspect]
     Indication: HYPERTENSION
  4. DOXAZOCIN [Suspect]
     Indication: HYPERTENSION
  5. ATENOLOL [Suspect]
     Indication: HYPERTENSION

REACTIONS (6)
  - BLOOD PRESSURE INADEQUATELY CONTROLLED [None]
  - DIZZINESS POSTURAL [None]
  - DRUG INEFFECTIVE [None]
  - ORTHOSTATIC HYPOTENSION [None]
  - PULMONARY OEDEMA [None]
  - RESPIRATORY DISTRESS [None]
